FAERS Safety Report 4343976-3 (Version None)
Quarter: 2004Q2

REPORT INFORMATION
  Report Type: 
  Country: None (occurrence: None)
  Receive Date: 20040422
  Receipt Date: 20040414
  Transmission Date: 20050107
  Serious: Yes (Other)
  Sender: FDA-Public Use
  Company Number: DE-ROCHE-364550

PATIENT
  Sex: Male

DRUGS (1)
  1. ROCEPHIN [Suspect]
     Indication: BORRELIA INFECTION
     Route: 042

REACTIONS (2)
  - ARRHYTHMIA [None]
  - BREAST DISCOMFORT [None]
